FAERS Safety Report 7322104-6 (Version None)
Quarter: 2011Q1

REPORT INFORMATION
  Report Type: 
  Country: None (occurrence: None)
  Receive Date: 20110228
  Receipt Date: 20110215
  Transmission Date: 20110831
  Serious: Yes (Hospitalization)
  Sender: FDA-Public Use
  Company Number: AT-GENENTECH-310704

PATIENT
  Sex: Male

DRUGS (12)
  1. ALLOPURINOL [Concomitant]
     Indication: PRODUCT USED FOR UNKNOWN INDICATION
     Dosage: UNK
  2. MOVIPREP [Concomitant]
     Indication: PRODUCT USED FOR UNKNOWN INDICATION
     Dosage: UNK
     Dates: start: 20100909
  3. DILATREND [Concomitant]
     Indication: PRODUCT USED FOR UNKNOWN INDICATION
     Dosage: UNK
     Dates: start: 20101101
  4. ULSAL [Concomitant]
     Indication: PRODUCT USED FOR UNKNOWN INDICATION
     Dosage: UNK
     Dates: start: 20101101
  5. LOVENOX [Concomitant]
     Indication: PRODUCT USED FOR UNKNOWN INDICATION
     Dosage: UNK
     Dates: start: 20100701
  6. ASPIRIN [Concomitant]
     Indication: PRODUCT USED FOR UNKNOWN INDICATION
     Dosage: UNK
     Dates: start: 20101101
  7. RITUXIMAB [Suspect]
     Dosage: 710 MG, UNK
     Route: 042
     Dates: start: 20110202
  8. TRITACE [Concomitant]
     Indication: PRODUCT USED FOR UNKNOWN INDICATION
     Dosage: UNK
     Dates: start: 20101101
  9. LASIX [Concomitant]
     Indication: PRODUCT USED FOR UNKNOWN INDICATION
     Dosage: UNK
     Dates: start: 20101101
  10. RITUXIMAB [Suspect]
     Indication: NON-HODGKIN'S LYMPHOMA
     Dosage: 375 MG/M2, UNK
     Route: 042
     Dates: start: 20100715, end: 20101202
  11. RITUXIMAB [Suspect]
     Dosage: UNK
     Route: 042
     Dates: start: 20101216, end: 20110112
  12. BENDAMUSTINE [Suspect]
     Indication: NON-HODGKIN'S LYMPHOMA
     Dosage: 90 MG/M2, UNK
     Route: 042
     Dates: start: 20100716, end: 20101216

REACTIONS (3)
  - PULMONARY OEDEMA [None]
  - CORONARY ARTERY DISEASE [None]
  - MYOCARDIAL INFARCTION [None]
